FAERS Safety Report 19724172 (Version 1)
Quarter: 2021Q3

REPORT INFORMATION
  Report Type: Spontaneous
  Country: BR (occurrence: BR)
  Receive Date: 20210820
  Receipt Date: 20210820
  Transmission Date: 20211014
  Serious: Yes (Hospitalization, Other)
  Sender: FDA-Public Use
  Company Number: BR-SA-2018SA017217

PATIENT
  Sex: Female
  Weight: 85 kg

DRUGS (1)
  1. FABRAZYME [Suspect]
     Active Substance: AGALSIDASE BETA
     Indication: FABRY^S DISEASE
     Dosage: 1 MG/KG, QOW
     Route: 041
     Dates: start: 201709

REACTIONS (5)
  - Cerebrovascular accident [Unknown]
  - Complications of transplanted kidney [Unknown]
  - Headache [Unknown]
  - End stage renal disease [Recovering/Resolving]
  - Pain [Recovering/Resolving]
